FAERS Safety Report 25969820 (Version 1)
Quarter: 2025Q4

REPORT INFORMATION
  Report Type: Spontaneous
  Country: CN (occurrence: CN)
  Receive Date: 20251028
  Receipt Date: 20251028
  Transmission Date: 20260118
  Serious: Yes (Death, Disabling, Other)
  Sender: AMGEN
  Company Number: CN-AMGEN-CHNSP2025212163

PATIENT

DRUGS (4)
  1. EVOLOCUMAB [Suspect]
     Active Substance: EVOLOCUMAB
     Indication: Ischaemic stroke
     Dosage: 140 MILLIGRAM (1 ML)
     Route: 058
  2. EVOLOCUMAB [Suspect]
     Active Substance: EVOLOCUMAB
     Dosage: 140 MILLIGRAM, Q2WK
     Route: 058
  3. ATORVASTATIN [Concomitant]
     Active Substance: ATORVASTATIN
     Indication: Ischaemic stroke
     Dosage: 40 MILLIGRAM, WITHIN 24 H AFTER THE ONSET OF SYMPTOMS
     Route: 048
  4. ATORVASTATIN [Concomitant]
     Active Substance: ATORVASTATIN
     Dosage: 40 MILLIGRAM, ONCE NIGHTLY
     Route: 048

REACTIONS (4)
  - Cerebrovascular accident [Fatal]
  - Disability [Unknown]
  - Adverse event [Unknown]
  - Neurological decompensation [Unknown]
